FAERS Safety Report 25837255 (Version 1)
Quarter: 2025Q3

REPORT INFORMATION
  Report Type: Spontaneous
  Country: BR (occurrence: BR)
  Receive Date: 20250923
  Receipt Date: 20250923
  Transmission Date: 20251021
  Serious: Yes (Other)
  Sender: ELI LILLY AND COMPANY
  Company Number: BR-ELI_LILLY_AND_COMPANY-BR202509012364

PATIENT
  Sex: Female

DRUGS (1)
  1. TALTZ [Suspect]
     Active Substance: IXEKIZUMAB
     Indication: Product used for unknown indication
     Route: 065

REACTIONS (8)
  - Facial paralysis [Unknown]
  - Gastrointestinal disorder [Unknown]
  - Dermatitis [Unknown]
  - Pruritus [Unknown]
  - Erythema [Unknown]
  - Pain [Unknown]
  - Sinusitis [Unknown]
  - Oropharyngeal pain [Unknown]
